FAERS Safety Report 23571421 (Version 1)
Quarter: 2024Q1

REPORT INFORMATION
  Report Type: Spontaneous
  Country: FR (occurrence: FR)
  Receive Date: 20240227
  Receipt Date: 20240227
  Transmission Date: 20240410
  Serious: Yes (Hospitalization)
  Sender: FDA-Public Use
  Company Number: None

PATIENT
  Age: 75 Year
  Sex: Male

DRUGS (17)
  1. LOXAPINE [Suspect]
     Active Substance: LOXAPINE
     Indication: Schizophrenia
     Dosage: 150 MG, QD ( 50 MG, COMPRIM? PELLICUL?)
     Route: 048
     Dates: end: 20231215
  2. LOXAPINE [Suspect]
     Active Substance: LOXAPINE
     Dosage: 200 MG, QD ( 50 MG, COMPRIM? PELLICUL?0
     Route: 048
     Dates: start: 20231215, end: 20231216
  3. QUETIAPINE [Suspect]
     Active Substance: QUETIAPINE
     Indication: Schizophrenia
     Dosage: 300 MG, QD (? 16H)
     Route: 048
     Dates: end: 20231215
  4. QUETIAPINE [Suspect]
     Active Substance: QUETIAPINE
     Dosage: 600 MG, QD (? 16H)
     Route: 048
     Dates: start: 20231215, end: 20231216
  5. TRIMEPRAZINE [Suspect]
     Active Substance: TRIMEPRAZINE
     Indication: Schizophrenia
     Dosage: 20 MG, QD (5 MG, COMPRIM? PELLICUL? S?CABLE)
     Route: 048
     Dates: end: 20231216
  6. TIAPRIDE HYDROCHLORIDE [Suspect]
     Active Substance: TIAPRIDE HYDROCHLORIDE
     Indication: Schizophrenia
     Dosage: 100 MG, QD (LE SOIR (100 MG, COMPRIM? S?CABLE)
     Route: 048
     Dates: end: 20231216
  7. DORZOLAMIDE HYDROCHLORIDE\TIMOLOL MALEATE [Concomitant]
     Active Substance: DORZOLAMIDE HYDROCHLORIDE\TIMOLOL MALEATE
     Indication: Product used for unknown indication
     Dosage: 1 DF, QD (20 MG/ML + 5 MG/ML, COLLYRE EN SOLUTION)
     Route: 047
  8. EUPANTOL [Concomitant]
     Active Substance: PANTOPRAZOLE SODIUM
     Indication: Product used for unknown indication
     Dosage: 40 MG, QD (40 MG, COMPRIM? GASTROR?SISTANT)
     Route: 048
  9. FERROUS FUMARATE [Concomitant]
     Active Substance: FERROUS FUMARATE
     Indication: Product used for unknown indication
     Dosage: 198 MG, QD (66 MG, COMPRIM? PELLICUL?)
     Route: 048
  10. KARDEGIC [Concomitant]
     Active Substance: ASPIRIN DL-LYSINE
     Indication: Product used for unknown indication
     Dosage: 75 MG, QD (75 MG, POUDRE POUR SOLUTION BUVABLE EN SACHET-DOSE)
     Route: 048
  11. LEVETIRACETAM [Concomitant]
     Active Substance: LEVETIRACETAM
     Indication: Product used for unknown indication
     Dosage: 1000 MG, QD
     Route: 048
  12. MIRTAZAPINE [Concomitant]
     Active Substance: MIRTAZAPINE
     Indication: Product used for unknown indication
     Dosage: 15 MG, QD
     Route: 048
  13. LATANOPROST [Concomitant]
     Active Substance: LATANOPROST
     Indication: Product used for unknown indication
     Dosage: 1 DF, QD (MONOPROST 50 MICROGRAMMES/ML, COLLYRE EN SOLUTION EN R?CIPIENT UNIDOSE)
     Route: 047
  14. MOVICOL [Concomitant]
     Active Substance: POLYETHYLENE GLYCOL 3350\POTASSIUM CHLORIDE\SODIUM BICARBONATE\SODIUM CHLORIDE
     Indication: Product used for unknown indication
     Dosage: 0.5 DF, QD
     Route: 048
  15. TRIHEXYPHENIDYL HYDROCHLORIDE [Concomitant]
     Active Substance: TRIHEXYPHENIDYL HYDROCHLORIDE
     Indication: Product used for unknown indication
     Dosage: 2 MG, QD ( LP 2 MG, G?LULE ? LIB?RATION PROLONG?E)
     Route: 048
  16. OXAZEPAM [Concomitant]
     Active Substance: OXAZEPAM
     Indication: Product used for unknown indication
     Dosage: 20 MG, QD (10 MG, COMPRIM?)
     Route: 048
  17. CHOLECALCIFEROL [Concomitant]
     Active Substance: CHOLECALCIFEROL
     Indication: Product used for unknown indication
     Dosage: 1 DF, QD (100 000 UI, SOLUTION BUVABLE EN AMPOULE)
     Route: 048

REACTIONS (1)
  - Schizophrenia [Recovered/Resolved]

NARRATIVE: CASE EVENT DATE: 20231215
